FAERS Safety Report 6243061-X (Version None)
Quarter: 2009Q2

REPORT INFORMATION
  Report Type: 
  Country: None (occurrence: None)
  Receive Date: 20090624
  Receipt Date: 20090612
  Transmission Date: 20091009
  Serious: Yes (Hospitalization, Other)
  Sender: FDA-Public Use
  Company Number: DE-ELI_LILLY_AND_COMPANY-DE200906003172

PATIENT
  Age: 72 Year
  Sex: Female

DRUGS (2)
  1. ZYPREXA [Suspect]
     Indication: DEPRESSION
     Dosage: 20 MG, DAILY (1/D)
     Route: 048
     Dates: start: 20010101, end: 20081104
  2. ZYPREXA [Suspect]
     Dosage: 15 MG, DAILY (1/D)
     Route: 048
     Dates: start: 20081105, end: 20081120

REACTIONS (3)
  - EMBOLISM [None]
  - HYPERGLYCAEMIA [None]
  - PERIPHERAL ARTERIAL OCCLUSIVE DISEASE [None]
